FAERS Safety Report 18054483 (Version 1)
Quarter: 2020Q3

REPORT INFORMATION
  Report Type: Spontaneous
  Country: US (occurrence: US)
  Receive Date: 20200722
  Receipt Date: 20200722
  Transmission Date: 20201103
  Serious: No
  Sender: FDA-Public Use
  Company Number: None

PATIENT
  Sex: Female

DRUGS (1)
  1. BOTOX [Suspect]
     Active Substance: ONABOTULINUMTOXINA
     Indication: MUSCLE SPASMS
     Dosage: ?          OTHER DOSE:UP TO 200 UNITS;OTHER FREQUENCY:EVERY 90 DAYS;?
     Route: 030
     Dates: start: 202005

REACTIONS (1)
  - Dysphagia [None]
